FAERS Safety Report 10868903 (Version 1)
Quarter: 2015Q1

REPORT INFORMATION
  Report Type: Spontaneous
  Country: GB (occurrence: GB)
  Receive Date: 20150225
  Receipt Date: 20150225
  Transmission Date: 20150721
  Serious: Yes (Other)
  Sender: FDA-Public Use
  Company Number: GB-TEVA-542299ISR

PATIENT
  Age: 81 Year
  Sex: Male

DRUGS (3)
  1. EFUDIX [Suspect]
     Active Substance: FLUOROURACIL
     Indication: ACTINIC KERATOSIS
     Dosage: 5 PER CENT
     Route: 065
  2. SOLARAZE [Concomitant]
     Active Substance: DICLOFENAC SODIUM
     Dosage: 3 PER CENT
     Route: 065
  3. PREDNISOLONE. [Suspect]
     Active Substance: PREDNISOLONE
     Indication: CHRONIC OBSTRUCTIVE PULMONARY DISEASE
     Route: 065

REACTIONS (4)
  - Squamous cell carcinoma [Unknown]
  - Actinic keratosis [Unknown]
  - Bowen^s disease [Unknown]
  - Inflammation [Unknown]
